FAERS Safety Report 11315330 (Version 1)
Quarter: 2015Q3

REPORT INFORMATION
  Report Type: Spontaneous
  Country: US (occurrence: US)
  Receive Date: 20150727
  Receipt Date: 20150727
  Transmission Date: 20151125
  Serious: Yes (Hospitalization, Other)
  Sender: FDA-Public Use
  Company Number: US-EMD SERONO-7066811

PATIENT
  Age: 61 Year
  Sex: Male
  Weight: 66 kg

DRUGS (6)
  1. BACLOFEN. [Concomitant]
     Active Substance: BACLOFEN
     Indication: MUSCLE SPASTICITY
     Route: 048
  2. IBUPROFEN. [Concomitant]
     Active Substance: IBUPROFEN
  3. BENADRYL [Concomitant]
     Active Substance: DIPHENHYDRAMINE HYDROCHLORIDE
     Indication: INSOMNIA
     Route: 048
  4. REBIF [Suspect]
     Active Substance: INTERFERON BETA-1A
     Indication: MULTIPLE SCLEROSIS
     Route: 058
     Dates: start: 20090911, end: 201411
  5. REBIF [Suspect]
     Active Substance: INTERFERON BETA-1A
     Route: 058
     Dates: end: 201506
  6. ASPIRIN. [Concomitant]
     Active Substance: ASPIRIN

REACTIONS (3)
  - Neuroendocrine carcinoma [Recovered/Resolved]
  - Lung carcinoma cell type unspecified stage IV [Unknown]
  - Joint swelling [Unknown]

NARRATIVE: CASE EVENT DATE: 201506
